FAERS Safety Report 23537856 (Version 2)
Quarter: 2024Q1

REPORT INFORMATION
  Report Type: Spontaneous
  Country: SM (occurrence: SM)
  Receive Date: 20240219
  Receipt Date: 20240313
  Transmission Date: 20240410
  Serious: Yes (Other)
  Sender: FDA-Public Use
  Company Number: SM-AMGEN-SMRSP2024031189

PATIENT

DRUGS (1)
  1. PROLIA [Suspect]
     Active Substance: DENOSUMAB
     Indication: Osteoporosis
     Dosage: UNK
     Route: 065

REACTIONS (2)
  - Osteonecrosis [Unknown]
  - Complex regional pain syndrome [Unknown]
